FAERS Safety Report 9697866 (Version 1)
Quarter: 2013Q4

REPORT INFORMATION
  Report Type: Spontaneous
  Country: AU (occurrence: AU)
  Receive Date: 20131120
  Receipt Date: 20131120
  Transmission Date: 20140711
  Serious: Yes (Other)
  Sender: FDA-Public Use
  Company Number: AU-SA-2013SA115983

PATIENT
  Sex: Male

DRUGS (3)
  1. AMARYL [Suspect]
     Indication: DIABETES MELLITUS
     Route: 065
  2. AMARYL [Suspect]
     Indication: DIABETES MELLITUS
     Route: 065
  3. AMARYL [Suspect]
     Indication: DIABETES MELLITUS
     Route: 065

REACTIONS (3)
  - Renal impairment [Unknown]
  - Drug effect decreased [Unknown]
  - Blood glucose decreased [Unknown]
